FAERS Safety Report 6239642-X (Version None)
Quarter: 2009Q2

REPORT INFORMATION
  Report Type: 
  Country: None (occurrence: None)
  Receive Date: 20090619
  Receipt Date: 20090607
  Transmission Date: 20091009
  Serious: Yes (Other)
  Sender: FDA-Public Use
  Company Number: GB-DEXPHARM-20090823

PATIENT
  Age: 4 Year
  Sex: Male

DRUGS (2)
  1. CHLORHEXIDINE GLUCONATE [Suspect]
     Dosage: 0.5 % PERCENT
     Dates: start: 20090318, end: 20090318
  2. HYDROGEN PEROXIDE SOLUTION [Suspect]
     Dates: start: 20090318, end: 20090318

REACTIONS (2)
  - BLISTER [None]
  - ERYTHEMA [None]
